FAERS Safety Report 6831089-8 (Version None)
Quarter: 2010Q3

REPORT INFORMATION
  Report Type: 
  Country: None (occurrence: None)
  Receive Date: 20100709
  Receipt Date: 20100709
  Transmission Date: 20110219
  Serious: Yes (Other)
  Sender: FDA-Public Use
  Company Number: None

PATIENT
  Age: 12 Year
  Sex: Male
  Weight: 40 kg

DRUGS (8)
  1. VIRAZOLE [Suspect]
     Indication: ADENOVIRUS INFECTION
     Dosage: 16 MG/KG Q 6 HR IV
     Route: 042
     Dates: start: 20100701, end: 20100705
  2. SIROLIMUS [Concomitant]
  3. PREDNISONE [Concomitant]
  4. NEUPOGEN [Concomitant]
  5. MEROPENAM [Concomitant]
  6. CIPROFLOXACIN [Concomitant]
  7. VORICONAZOLE [Concomitant]
  8. DAPTOMYCIN [Concomitant]

REACTIONS (5)
  - ACUTE GRAFT VERSUS HOST DISEASE IN SKIN [None]
  - BLOOD BILIRUBIN INCREASED [None]
  - CONDITION AGGRAVATED [None]
  - PANCREATITIS [None]
  - TRANSAMINASES INCREASED [None]
